FAERS Safety Report 15521679 (Version 1)
Quarter: 2018Q4

REPORT INFORMATION
  Report Type: Spontaneous
  Country: US (occurrence: US)
  Receive Date: 20181018
  Receipt Date: 20181018
  Transmission Date: 20190205
  Serious: Yes (Life-Threatening, Other)
  Sender: FDA-Public Use
  Company Number: None

PATIENT
  Age: 71 Year
  Sex: Female
  Weight: 97 kg

DRUGS (3)
  1. OLARATUMAB [Suspect]
     Active Substance: OLARATUMAB
     Indication: LEIOMYOSARCOMA
     Dosage: ?          OTHER FREQUENCY:ONCE;?
     Route: 041
     Dates: start: 20181010, end: 20181010
  2. HCTZ [Concomitant]
     Active Substance: HYDROCHLOROTHIAZIDE
  3. VERAPAMIL [Concomitant]
     Active Substance: VERAPAMIL HYDROCHLORIDE

REACTIONS (4)
  - Anaphylactic reaction [None]
  - Acute myocardial infarction [None]
  - Unresponsive to stimuli [None]
  - Acute respiratory failure [None]

NARRATIVE: CASE EVENT DATE: 20181010
